FAERS Safety Report 10761506 (Version 1)
Quarter: 2015Q1

REPORT INFORMATION
  Report Type: Spontaneous
  Country: None (occurrence: None)
  Receive Date: 20150203
  Receipt Date: 20150203
  Transmission Date: 20150721
  Serious: No
  Sender: FDA-Public Use
  Company Number: None

PATIENT
  Age: 29 Year
  Sex: Female
  Weight: 86.18 kg

DRUGS (1)
  1. FLONASE [Suspect]
     Active Substance: FLUTICASONE PROPIONATE
     Indication: EAR CONGESTION
     Dosage: 2 SPRAYS
     Route: 055
     Dates: start: 20141212, end: 20141223

REACTIONS (10)
  - Extrasystoles [None]
  - Sneezing [None]
  - Palpitations [None]
  - Nasal ulcer [None]
  - Eye pruritus [None]
  - Anxiety [None]
  - Throat irritation [None]
  - Scab [None]
  - Epistaxis [None]
  - Rhinorrhoea [None]
